FAERS Safety Report 5182533-6 (Version None)
Quarter: 2006Q4

REPORT INFORMATION
  Report Type: 
  Country: None (occurrence: None)
  Receive Date: 20061220
  Receipt Date: 20061018
  Transmission Date: 20070319
  Serious: No
  Sender: FDA-Public Use
  Company Number: US-GLAXOSMITHKLINE-A0623974A

PATIENT
  Sex: Female

DRUGS (1)
  1. COMMIT [Suspect]
     Indication: DRUG USE FOR UNKNOWN INDICATION
     Dosage: 4MG AS DIRECTED
     Dates: start: 20061011, end: 20061011

REACTIONS (2)
  - NAUSEA [None]
  - PHARYNGOLARYNGEAL PAIN [None]
